FAERS Safety Report 9015013 (Version 1)
Quarter: 2013Q1

REPORT INFORMATION
  Report Type: Spontaneous
  Country: US (occurrence: None)
  Receive Date: 20130109
  Receipt Date: 20130109
  Transmission Date: 20140127
  Serious: No
  Sender: FDA-Public Use
  Company Number: None

PATIENT
  Age: 49 Year
  Sex: Female
  Weight: 53.52 kg

DRUGS (2)
  1. RANITIDINE 75 [Suspect]
     Indication: DYSPEPSIA
     Dates: start: 201301
  2. PRILOSEC [Concomitant]

REACTIONS (4)
  - Pruritus [None]
  - Scratch [None]
  - Urticaria [None]
  - Rash [None]
